FAERS Safety Report 22036698 (Version 10)
Quarter: 2023Q2

REPORT INFORMATION
  Report Type: Spontaneous
  Country: US (occurrence: US)
  Receive Date: 20230225
  Receipt Date: 20230617
  Transmission Date: 20230721
  Serious: Yes (Life-Threatening, Hospitalization, Other)
  Sender: FDA-Public Use
  Company Number: US-UNITED THERAPEUTICS-UNT-2023-004636

PATIENT
  Age: 69 Year
  Sex: Female
  Weight: 118.37 kg

DRUGS (47)
  1. REMODULIN [Suspect]
     Active Substance: TREPROSTINIL
     Indication: Pulmonary arterial hypertension
     Dosage: 0.012 ?G/KG (SELF FILLED REMUNITY; CASSETTE WITH 2.8 ML; AT A RATE OF 32 MCL/HOUR), CONTINUING
     Route: 058
  2. REMODULIN [Suspect]
     Active Substance: TREPROSTINIL
     Dosage: 0.018 ?G/KG, CONTINUING
     Route: 058
  3. REMODULIN [Suspect]
     Active Substance: TREPROSTINIL
     Dosage: 0.028 ?G/KG (FILL CASSETTE WITH 2.8 ML; RATE OF 32 MCL PER HOUR), CONTINUING
     Route: 058
  4. REMODULIN [Suspect]
     Active Substance: TREPROSTINIL
     Dosage: UNK, CONTINUING
     Route: 058
     Dates: start: 20221213
  5. REMODULIN [Suspect]
     Active Substance: TREPROSTINIL
     Indication: Pulmonary arterial hypertension
     Dosage: 0.012 ?G/KG, CONTINUING (3 ML; PUMP RATE OF 79 MCL/HR))
     Route: 058
  6. REMODULIN [Suspect]
     Active Substance: TREPROSTINIL
     Dosage: UNK, CONTINUING
     Route: 058
  7. REMODULIN [Suspect]
     Active Substance: TREPROSTINIL
     Indication: Pulmonary arterial hypertension
     Dosage: 0.028 ?G/KG (SELF-FILL CASSETTE WITH 1.8 ML, PUMP RATE OF 18 MCL PER HOUR), CONTINUING
     Route: 058
  8. REMODULIN [Suspect]
     Active Substance: TREPROSTINIL
     Dosage: UNK, CONTINUING
     Route: 058
  9. REMODULIN [Suspect]
     Active Substance: TREPROSTINIL
     Indication: Pulmonary arterial hypertension
     Dosage: 0.024 ?G/KG (SELF-FILL CASSETTE WITH 2.8 ML; RATE OF 32 MCL PER HOUR), CONTINUING
     Route: 058
  10. REMODULIN [Suspect]
     Active Substance: TREPROSTINIL
     Dosage: UNK, CONTINUING
     Route: 058
     Dates: end: 202303
  11. TYVASO DPI [Suspect]
     Active Substance: TREPROSTINIL
     Indication: Pulmonary arterial hypertension
     Dosage: 64 ?G, QID
     Dates: start: 20230331
  12. TYVASO DPI [Suspect]
     Active Substance: TREPROSTINIL
     Dosage: UNK
     Dates: start: 20230324
  13. TYVASO DPI [Suspect]
     Active Substance: TREPROSTINIL
     Indication: Pulmonary arterial hypertension
     Dosage: UNK
  14. REVATIO [Concomitant]
     Active Substance: SILDENAFIL CITRATE
     Indication: Pulmonary arterial hypertension
     Dosage: 20 MG, Q8H (TAKE 1 TABLET BY MOUTH EVERY 8 HOURS)
     Route: 048
     Dates: start: 20230404
  15. UPTRAVI [Concomitant]
     Active Substance: SELEXIPAG
     Indication: Product used for unknown indication
     Dosage: UNK
     Route: 065
  16. OPSUMIT [Concomitant]
     Active Substance: MACITENTAN
     Indication: Product used for unknown indication
     Dosage: 10 MG, QD (TAKE 1 TABLET BY MOUTH ONCE A DAY)
     Route: 048
     Dates: start: 20230228
  17. TYLENOL [Concomitant]
     Active Substance: ACETAMINOPHEN
     Indication: Product used for unknown indication
     Dosage: 650 MG, Q8H (TAKE 2 TABLETS BY MOUTH EVERY 8 HOURS)
     Route: 048
  18. XANAX [Concomitant]
     Active Substance: ALPRAZOLAM
     Indication: Anxiety
     Dosage: 0.5 MG, Q8H (TAKE 1 TABLET BY MOUTH EVERY 8 HOURS AS NEEDED)
     Route: 048
  19. ECOTRIN [Concomitant]
     Active Substance: ASPIRIN
     Indication: Product used for unknown indication
     Dosage: 81 MG, QD (TAKE 1 TABLET BY MOUTH ONCE A DAY)
     Route: 048
  20. LIPITOR [Concomitant]
     Active Substance: ATORVASTATIN CALCIUM
     Indication: Product used for unknown indication
     Dosage: 20 MG, QD (TAKE 1 TABLET BY MOUTH EVERY EVENING)
     Route: 048
  21. BROVANA [Concomitant]
     Active Substance: ARFORMOTEROL TARTRATE
     Indication: Product used for unknown indication
     Dosage: TAKE 2 ML (15 MCG TOTAL) BY NEBULIZATION TWICE DAILY
  22. PULMICORT FLEXHALER [Concomitant]
     Active Substance: BUDESONIDE
     Indication: Product used for unknown indication
     Dosage: UNK UNK, BID
  23. WELLBUTRIN XL [Concomitant]
     Active Substance: BUPROPION HYDROCHLORIDE
     Indication: Product used for unknown indication
     Dosage: 150 MG, QD (TAKE 1 TABLET BY MOUTH EVERY MORNING)
     Route: 048
  24. BUSPAR [Concomitant]
     Active Substance: BUSPIRONE HYDROCHLORIDE
     Indication: Product used for unknown indication
     Dosage: 10 MG, TID (TAKE 1 TABLET BY MOUTH THREE TIMES A DAY)
     Route: 048
  25. ZYRTEC [Concomitant]
     Active Substance: CETIRIZINE HYDROCHLORIDE
     Indication: Product used for unknown indication
     Dosage: 10 MG, QD (TAKE 1 TABLET BY MOUTH ONCE A DAY)
     Route: 048
  26. LIDOCAINE [Concomitant]
     Active Substance: LIDOCAINE
     Indication: Oral pain
     Dosage: SWISH AND SWALLOW 15 ML FOUR TIMES A DAY AS NEEDED
     Route: 065
  27. MYCELEX [Concomitant]
     Active Substance: CLOTRIMAZOLE
     Indication: Product used for unknown indication
     Dosage: 10 MG (TAKE 1 TROCHE BY MOUTH 5 TIMES A DAY)
     Route: 048
  28. PEPCID [Concomitant]
     Active Substance: FAMOTIDINE
     Indication: Product used for unknown indication
     Dosage: 40 MG, QD (TAKE 1 TABLET BY MOUTH EVERY EVENING)
     Route: 048
  29. PROZAC [Concomitant]
     Active Substance: FLUOXETINE HYDROCHLORIDE
     Indication: Product used for unknown indication
     Dosage: 40 MG, QD (TAKE 1 CAPSULE BY MOUTH ONCE A DAY)
     Route: 048
  30. XOPENEX [Concomitant]
     Active Substance: LEVALBUTEROL HYDROCHLORIDE
     Indication: Dyspnoea
     Dosage: 3 ML, Q6H (TAKE 3 ML BY NEBULIZATION EVERY 6 HOURS AS NEEDED)
     Dates: start: 20230331, end: 20230601
  31. XOPENEX [Concomitant]
     Active Substance: LEVALBUTEROL HYDROCHLORIDE
     Indication: Wheezing
  32. LINZESS [Concomitant]
     Active Substance: LINACLOTIDE
     Indication: Irritable bowel syndrome
     Dosage: 145 MCG, QD (TAKE 1 CAPSULE BY MOUTH ONCE PER DAY AS NEEDED)
     Route: 048
     Dates: start: 20230120
  33. LINZESS [Concomitant]
     Active Substance: LINACLOTIDE
     Indication: Constipation
  34. MAGNESIUM OXIDE [Concomitant]
     Active Substance: MAGNESIUM OXIDE
     Indication: Product used for unknown indication
     Dosage: 400 MG, BID (TAKE 1 TABLET BY MOUTH TWICE DAILY)
     Route: 048
     Dates: start: 20230404, end: 20230424
  35. NASONEX [Concomitant]
     Active Substance: MOMETASONE FUROATE
     Indication: Rhinitis allergic
     Dosage: 50 MCG, BID (ADMINISTER 1 SPRAY INTO AFFECTED NOSTRIL TWICE DAILY IN MORNING AND EVENING)
     Route: 045
     Dates: start: 20201210, end: 20230601
  36. SINGULAIR [Concomitant]
     Active Substance: MONTELUKAST SODIUM
     Indication: Product used for unknown indication
     Dosage: 10 MG, QD (TAKE 1 TABLET BY MOUTH EVERY EVENING)
     Route: 048
     Dates: start: 20211202, end: 20230605
  37. MYCOSTATIN [Concomitant]
     Active Substance: NYSTATIN
     Indication: Product used for unknown indication
     Dosage: UNK (SWISH AND SPIT 5 ML 4 TIMES A DAY)
     Route: 048
     Dates: start: 20230306, end: 20230605
  38. OXYGEN [Concomitant]
     Active Substance: OXYGEN
     Indication: Dyspnoea
     Dosage: ADMINISTER 5L/MIN INTO AFFECTED NOSTRIL (S) CONTINUOUS, WEARS BETWEEN 4-6 L
     Route: 045
     Dates: start: 20220731
  39. MIRALAX [Concomitant]
     Active Substance: POLYETHYLENE GLYCOL 3350
     Indication: Product used for unknown indication
     Dosage: 17 GRAM, QD (TAKE 1 PACKET BY MOUTH ONCE A DAY)
     Route: 048
     Dates: start: 20230228
  40. K-DUR [Concomitant]
     Active Substance: POTASSIUM CHLORIDE
     Indication: Product used for unknown indication
     Dosage: 40 MEQ/L, QD (TAKE 2 TABLETS BY MOUTH EVERY MORNING WITH BREAKFAST)
     Route: 048
     Dates: start: 20230319, end: 20230606
  41. REQUIP [Concomitant]
     Active Substance: ROPINIROLE HYDROCHLORIDE
     Indication: Product used for unknown indication
     Dosage: 0.5 MG, QD (TAKE 1 TABLET BY MOUTH EVERY EVENING)
     Route: 048
     Dates: start: 20220914
  42. DEMADEX [Concomitant]
     Active Substance: TORSEMIDE
     Indication: Fluid retention
     Dosage: 40 MG, BID (TAKE 2 TABLETS BY MOUTH TWICE DAILY {MORNING AND EVENING})
     Route: 048
     Dates: start: 20230404, end: 20230424
  43. DESYREL [Concomitant]
     Active Substance: TRAZODONE HYDROCHLORIDE
     Indication: Product used for unknown indication
     Dosage: 100 MG, QD (TAKE 1 TABLET BY MOUTH EVERY NIGHT)
     Route: 048
     Dates: start: 20221006
  44. YUPELRI [Concomitant]
     Active Substance: REVEFENACIN
     Indication: Product used for unknown indication
     Dosage: 3 ML, QD (TAKE 3 ML BY NEBULIZATION ONCE A DAY)
     Dates: start: 20230331, end: 20230425
  45. MACROBID [Concomitant]
     Active Substance: NITROFURANTOIN\NITROFURANTOIN MONOHYDRATE
     Indication: Product used for unknown indication
     Dosage: UNK
     Route: 065
  46. DELTASONE [Concomitant]
     Active Substance: PREDNISONE
     Indication: Product used for unknown indication
     Route: 065
  47. BACTRIM DS [Concomitant]
     Active Substance: SULFAMETHOXAZOLE\TRIMETHOPRIM
     Indication: Product used for unknown indication
     Route: 065

REACTIONS (16)
  - Acute respiratory failure [Not Recovered/Not Resolved]
  - Infusion site infection [Recovered/Resolved]
  - Pulmonary arterial hypertension [Recovering/Resolving]
  - Pulmonary oedema [Not Recovered/Not Resolved]
  - Pneumonia [Recovering/Resolving]
  - Cardiac failure [Recovering/Resolving]
  - Oxygen saturation decreased [Recovering/Resolving]
  - Urinary tract infection [Recovering/Resolving]
  - Cellulitis [Unknown]
  - Chronic obstructive pulmonary disease [Recovering/Resolving]
  - Infusion site pain [Recovered/Resolved]
  - Infusion site discomfort [Recovered/Resolved]
  - Infusion site erythema [Recovered/Resolved]
  - Infusion site swelling [Recovered/Resolved]
  - Dry mouth [Not Recovered/Not Resolved]
  - Oral candidiasis [Unknown]

NARRATIVE: CASE EVENT DATE: 20230214
